FAERS Safety Report 9198918 (Version 3)
Quarter: 2013Q4

REPORT INFORMATION
  Report Type: Spontaneous
  Country: US (occurrence: US)
  Receive Date: 20130329
  Receipt Date: 20131002
  Transmission Date: 20140711
  Serious: Yes (Hospitalization, Other)
  Sender: FDA-Public Use
  Company Number: US-009507513-2011SP050834

PATIENT
  Sex: Female
  Weight: 72.58 kg

DRUGS (1)
  1. NUVARING [Suspect]
     Indication: CONTRACEPTION
     Dosage: UNK
     Route: 067
     Dates: start: 200810, end: 200811

REACTIONS (5)
  - Anaemia [Unknown]
  - Pulmonary embolism [Recovered/Resolved]
  - Spondylolisthesis [Unknown]
  - Limb discomfort [Unknown]
  - Deep vein thrombosis [Unknown]
